FAERS Safety Report 15724930 (Version 1)
Quarter: 2018Q4

REPORT INFORMATION
  Report Type: Report from Study
  Country: US (occurrence: US)
  Receive Date: 20181214
  Receipt Date: 20181214
  Transmission Date: 20190205
  Serious: Yes (Hospitalization)
  Sender: FDA-Public Use
  Company Number: US-BIOGEN-2018BI00669969

PATIENT
  Sex: Female

DRUGS (1)
  1. TECFIDERA [Suspect]
     Active Substance: DIMETHYL FUMARATE
     Indication: MULTIPLE SCLEROSIS
     Route: 065
     Dates: end: 201811

REACTIONS (9)
  - Urosepsis [Recovered/Resolved]
  - Underdose [Recovered/Resolved]
  - Cystitis [Recovered/Resolved with Sequelae]
  - Neurogenic bladder [Not Recovered/Not Resolved]
  - White blood cell count abnormal [Recovered/Resolved]
  - Catheter site abscess [Recovered/Resolved with Sequelae]
  - Drug ineffective [Not Recovered/Not Resolved]
  - Loss of control of legs [Recovered/Resolved]
  - Gait inability [Not Recovered/Not Resolved]

NARRATIVE: CASE EVENT DATE: 2016
